FAERS Safety Report 7937213-8 (Version None)
Quarter: 2011Q4

REPORT INFORMATION
  Report Type: 
  Country: None (occurrence: None)
  Receive Date: 20111123
  Receipt Date: 20111119
  Transmission Date: 20120403
  Serious: Yes (Other)
  Sender: FDA-Public Use
  Company Number: US-GLAXOSMITHKLINE-A0954190A

PATIENT
  Age: 4 Year
  Sex: Male

DRUGS (2)
  1. INHALERS [Concomitant]
     Indication: ASTHMA
  2. ADVAIR DISKUS 100/50 [Suspect]
     Indication: ASTHMA
     Dosage: 1PUFF TWICE PER DAY
     Route: 045

REACTIONS (3)
  - ASTHMA [None]
  - CONDITION AGGRAVATED [None]
  - INCORRECT ROUTE OF DRUG ADMINISTRATION [None]
